FAERS Safety Report 12526520 (Version 18)
Quarter: 2021Q2

REPORT INFORMATION
  Report Type: Report from Study
  Country: CA (occurrence: CA)
  Receive Date: 20160705
  Receipt Date: 20210615
  Transmission Date: 20210716
  Serious: Yes (Other)
  Sender: FDA-Public Use
  Company Number: PHHY2015CA168804

PATIENT
  Age: 58 Year
  Sex: Female

DRUGS (16)
  1. SANDOSTATIN LAR DEPOT [Suspect]
     Active Substance: OCTREOTIDE ACETATE
     Dosage: 30 MG, QMO (EVERY 4 WEEKS)
     Route: 030
     Dates: start: 20170412
  2. SANDOSTATIN [Suspect]
     Active Substance: OCTREOTIDE ACETATE
  3. AMLODIPINE [Concomitant]
     Active Substance: AMLODIPINE BESYLATE
     Dosage: 2.5 MG, QD
     Route: 065
  4. KOMBIGLYZE XR [Concomitant]
     Active Substance: METFORMIN HYDROCHLORIDE\SAXAGLIPTIN HYDROCHLORIDE
     Indication: PRODUCT USED FOR UNKNOWN INDICATION
     Dosage: 2.5 MG, BID
     Route: 065
     Dates: start: 20160610
  5. SANDOSTATIN LAR DEPOT [Suspect]
     Active Substance: OCTREOTIDE ACETATE
     Dosage: 30 MG, QMO (EVERY 4 WEEKS)
     Route: 030
     Dates: start: 20151218
  6. SANDOSTATIN [Suspect]
     Active Substance: OCTREOTIDE ACETATE
  7. PANTOPRAZOLE [Concomitant]
     Active Substance: PANTOPRAZOLE
     Indication: PRODUCT USED FOR UNKNOWN INDICATION
     Dosage: UNK
     Route: 065
  8. ASA [Concomitant]
     Active Substance: ASPIRIN
     Indication: CARDIOVASCULAR DISORDER
     Dosage: 80 MG, QD
     Route: 065
     Dates: start: 20190715
  9. FOSINOPRIL MYLAN [Concomitant]
     Active Substance: FOSINOPRIL
     Indication: PRODUCT USED FOR UNKNOWN INDICATION
     Dosage: 20 MG, QD
     Route: 048
  10. EVEROLIMUS. [Concomitant]
     Active Substance: EVEROLIMUS
     Indication: PRODUCT USED FOR UNKNOWN INDICATION
     Dosage: 10 MG, QD
     Route: 048
     Dates: start: 20170412
  11. AMLODIPINE [Concomitant]
     Active Substance: AMLODIPINE BESYLATE
     Indication: PRODUCT USED FOR UNKNOWN INDICATION
     Dosage: 5 MG, QD
     Route: 048
  12. SYNTHROID [Concomitant]
     Active Substance: LEVOTHYROXINE SODIUM
     Indication: PRODUCT USED FOR UNKNOWN INDICATION
     Dosage: 0.025 MG, QD
     Route: 048
  13. SANDOSTATIN [Suspect]
     Active Substance: OCTREOTIDE ACETATE
     Indication: CARCINOID TUMOUR
     Dosage: UNK
     Route: 058
     Dates: start: 20151205
  14. APO?GLICLAZIDE [Concomitant]
     Active Substance: GLICLAZIDE
     Indication: PRODUCT USED FOR UNKNOWN INDICATION
     Dosage: 60 MG
     Route: 065
     Dates: start: 20160610
  15. SANDOSTATIN LAR DEPOT [Suspect]
     Active Substance: OCTREOTIDE ACETATE
     Indication: CARCINOID TUMOUR
     Dosage: 20 MG, QMO (EVERY 4 WEEKS)
     Route: 030
     Dates: start: 20151218, end: 20170307
  16. OXYCODONE HYDROCHLORIDE. [Suspect]
     Active Substance: OXYCODONE HYDROCHLORIDE
     Indication: PRODUCT USED FOR UNKNOWN INDICATION
     Dosage: UNK
     Route: 065

REACTIONS (50)
  - Pneumonia [Unknown]
  - Hot flush [Unknown]
  - Oedema peripheral [Unknown]
  - Influenza [Unknown]
  - Back pain [Unknown]
  - Headache [Recovering/Resolving]
  - Metastases to liver [Unknown]
  - Balance disorder [Unknown]
  - Arthralgia [Unknown]
  - Vaginal infection [Unknown]
  - Blood pressure systolic increased [Unknown]
  - Abdominal pain upper [Unknown]
  - Lung disorder [Unknown]
  - Flatulence [Unknown]
  - Psoriasis [Unknown]
  - Oropharyngeal pain [Unknown]
  - Hyperglycaemia [Unknown]
  - Dry skin [Unknown]
  - Frequent bowel movements [Unknown]
  - Musculoskeletal pain [Unknown]
  - Acne [Unknown]
  - Myalgia [Unknown]
  - Flushing [Unknown]
  - Hypotension [Unknown]
  - Steatorrhoea [Unknown]
  - Constipation [Unknown]
  - Nausea [Recovering/Resolving]
  - Bacterial infection [Unknown]
  - Blood pressure increased [Unknown]
  - Dry mouth [Unknown]
  - Scratch [Unknown]
  - Fatigue [Unknown]
  - Dizziness [Unknown]
  - Abdominal distension [Unknown]
  - Carcinoid tumour [Unknown]
  - Influenza like illness [Unknown]
  - Nervousness [Unknown]
  - Body temperature decreased [Unknown]
  - Nasal congestion [Unknown]
  - Oral herpes [Unknown]
  - Somnolence [Unknown]
  - Fall [Unknown]
  - Meniere^s disease [Unknown]
  - Muscular weakness [Unknown]
  - Weight increased [Unknown]
  - Diarrhoea [Unknown]
  - Malignant neoplasm progression [Unknown]
  - Faeces discoloured [Unknown]
  - Abdominal pain [Unknown]
  - Vomiting [Unknown]

NARRATIVE: CASE EVENT DATE: 20151205
